FAERS Safety Report 9826056 (Version 3)
Quarter: 2017Q1

REPORT INFORMATION
  Report Type: Report from Study
  Country: PL (occurrence: PL)
  Receive Date: 20140117
  Receipt Date: 20170220
  Transmission Date: 20170429
  Serious: Yes (Hospitalization)
  Sender: FDA-Public Use
  Company Number: PL-ASTELLAS-2012US012123

PATIENT
  Age: 8 Year
  Sex: Female
  Weight: 21 kg

DRUGS (11)
  1. ZYX [Concomitant]
     Indication: DERMATITIS ATOPIC
  2. AVAMYS [Concomitant]
     Active Substance: FLUTICASONE FUROATE
     Indication: RHINITIS ALLERGIC
     Route: 045
     Dates: start: 201112
  3. ZINNAT                             /00454602/ [Concomitant]
     Active Substance: CEFUROXIME SODIUM
     Indication: BRONCHITIS
     Route: 048
     Dates: start: 20121023
  4. ZYX [Concomitant]
     Indication: RHINITIS ALLERGIC
     Route: 048
     Dates: start: 201112
  5. TACROLIMUS. [Suspect]
     Active Substance: TACROLIMUS
     Indication: DERMATITIS ATOPIC
     Dosage: 0.1 %, ONCE WEEKLY
     Route: 061
     Dates: start: 200603
  6. VENTOLIN [Concomitant]
     Active Substance: ALBUTEROL SULFATE
     Indication: ASTHMA
     Route: 055
     Dates: start: 20121023
  7. SINGULAIR [Concomitant]
     Active Substance: MONTELUKAST SODIUM
     Indication: DERMATITIS ATOPIC
     Dosage: UNK UNK, UNKNOWN FREQ.
     Route: 065
  8. VITAMIN A                          /00056001/ [Concomitant]
     Active Substance: RETINOL
     Indication: DERMATITIS ATOPIC
     Dosage: UNK UNK, UNKNOWN FREQ.
     Route: 065
  9. AUGMENTIN [Concomitant]
     Active Substance: AMOXICILLIN\CLAVULANATE POTASSIUM
     Indication: BRONCHITIS
     Dates: start: 20121121
  10. SERETIDE [Concomitant]
     Active Substance: FLUTICASONE PROPIONATE\SALMETEROL XINAFOATE
     Indication: DERMATITIS ATOPIC
     Route: 065
  11. TACROLIMUS. [Suspect]
     Active Substance: TACROLIMUS
     Dosage: 0.1 %, ONCE A DAY TWICE WEEKLY AS MAINTENANCE TREATMENT
     Route: 061
     Dates: start: 20120706

REACTIONS (6)
  - Asthma [Recovered/Resolved]
  - Off label use [Unknown]
  - Rhinitis allergic [Unknown]
  - Dermatitis atopic [Unknown]
  - Upper respiratory tract infection [Recovered/Resolved]
  - Pneumonia [Unknown]

NARRATIVE: CASE EVENT DATE: 20121128
